FAERS Safety Report 14718319 (Version 1)
Quarter: 2018Q2

REPORT INFORMATION
  Report Type: Spontaneous
  Country: US (occurrence: US)
  Receive Date: 20180404
  Receipt Date: 20180404
  Transmission Date: 20180711
  Serious: No
  Sender: FDA-Public Use
  Company Number: US-SA-2018SA085590

PATIENT
  Age: 20 Year
  Sex: Female

DRUGS (2)
  1. DUPIXENT [Suspect]
     Active Substance: DUPILUMAB
     Indication: ARTHRALGIA
     Route: 058
     Dates: start: 201710
  2. CLOBETASOL [Concomitant]
     Active Substance: CLOBETASOL
     Route: 065

REACTIONS (2)
  - Arthralgia [Unknown]
  - Condition aggravated [Unknown]
